FAERS Safety Report 15810714 (Version 2)
Quarter: 2019Q1

REPORT INFORMATION
  Report Type: Spontaneous
  Country: NO (occurrence: NO)
  Receive Date: 20190111
  Receipt Date: 20190204
  Transmission Date: 20190417
  Serious: Yes (Life-Threatening)
  Sender: FDA-Public Use
  Company Number: NO-OCTA-GAM24518NO

PATIENT
  Age: 1 Day
  Sex: Male
  Weight: 3.2 kg

DRUGS (1)
  1. OCTAGAM IMMUNE GLOBULIN (HUMAN) [Suspect]
     Active Substance: HUMAN IMMUNOGLOBULIN G
     Indication: CONGENITAL THROMBOCYTOPENIA
     Route: 042
     Dates: start: 20181226, end: 20181226

REACTIONS (7)
  - Condition aggravated [Recovered/Resolved with Sequelae]
  - Cerebral infarction [Recovered/Resolved with Sequelae]
  - Poor peripheral circulation [Recovered/Resolved with Sequelae]
  - Dyspnoea [Recovered/Resolved with Sequelae]
  - Metabolic acidosis [Recovered/Resolved with Sequelae]
  - Cardiac failure [Recovered/Resolved with Sequelae]
  - Blood pressure decreased [Recovered/Resolved with Sequelae]

NARRATIVE: CASE EVENT DATE: 20181226
